FAERS Safety Report 6872913-2 (Version None)
Quarter: 2010Q3

REPORT INFORMATION
  Report Type: 
  Country: None (occurrence: None)
  Receive Date: 20100723
  Receipt Date: 20081104
  Transmission Date: 20110219
  Serious: No
  Sender: FDA-Public Use
  Company Number: US-PFIZER INC-2008097622

PATIENT
  Age: 32 Year
  Sex: Male

DRUGS (2)
  1. CHANTIX [Suspect]
  2. GEODON [Concomitant]
     Indication: BIPOLAR DISORDER

REACTIONS (2)
  - ANXIETY [None]
  - FEELING ABNORMAL [None]
